FAERS Safety Report 9116087 (Version 1)
Quarter: 2013Q1

REPORT INFORMATION
  Report Type: Spontaneous
  Country: US (occurrence: US)
  Receive Date: 20130225
  Receipt Date: 20130225
  Transmission Date: 20140127
  Serious: No
  Sender: FDA-Public Use
  Company Number: US-ENDO PHARMACEUTICALS INC.-FORT20120255

PATIENT
  Sex: Male

DRUGS (6)
  1. FORTESTA [Suspect]
     Indication: HORMONE REPLACEMENT THERAPY
     Route: 061
     Dates: start: 201210, end: 2012
  2. FORTESTA [Suspect]
     Route: 061
     Dates: start: 201212, end: 201212
  3. ACTOS [Concomitant]
     Indication: PRODUCT USED FOR UNKNOWN INDICATION
     Dosage: UNKNOWN
     Route: 065
  4. NIFIDIPINE [Concomitant]
     Indication: PRODUCT USED FOR UNKNOWN INDICATION
     Dosage: UNKNOWN
     Route: 065
  5. ANDRODERM [Concomitant]
     Indication: HORMONE REPLACEMENT THERAPY
     Route: 065
     Dates: end: 201210
  6. ANDRODERM [Concomitant]
     Route: 061

REACTIONS (1)
  - Arthritis [Recovered/Resolved]
